FAERS Safety Report 24088595 (Version 1)
Quarter: 2024Q3

REPORT INFORMATION
  Report Type: Spontaneous
  Country: GB (occurrence: GB)
  Receive Date: 20240715
  Receipt Date: 20240715
  Transmission Date: 20241017
  Serious: Yes (Other)
  Sender: ESPERION THERAPEUTICS
  Company Number: None

PATIENT
  Age: 64 Year
  Sex: Female
  Weight: 77 kg

DRUGS (7)
  1. BEMPEDOIC ACID\EZETIMIBE [Suspect]
     Active Substance: BEMPEDOIC ACID\EZETIMIBE
     Indication: Product used for unknown indication
     Dosage: 1 DF, QD (180/10 MG)
     Route: 065
     Dates: start: 20240612
  2. BISACODYL [Concomitant]
     Active Substance: BISACODYL
     Indication: Product used for unknown indication
     Dosage: UNK UNK, (INSERT AS REQUIRED)
     Route: 065
     Dates: start: 20230308
  3. SENNA [Concomitant]
     Active Substance: SENNA LEAF\SENNOSIDES\SENNOSIDES A AND B
     Indication: Product used for unknown indication
     Dosage: QD (TAKE 1 OR 2 AT NIGHT)
     Route: 065
     Dates: start: 20230308
  4. CROMOLYN SODIUM [Concomitant]
     Active Substance: CROMOLYN SODIUM
     Indication: Product used for unknown indication
     Dosage: 1 DF, QID (ONE DROP 4 TIMES/DAY)
     Route: 065
     Dates: start: 20230308
  5. ROSUVASTATIN [Concomitant]
     Active Substance: ROSUVASTATIN
     Indication: Product used for unknown indication
     Dosage: 1 DF, ONCE EVERY 1 WK (TAKE ONE ONCE WEEKLY)
     Route: 065
     Dates: start: 20240314, end: 20240612
  6. OPTILUBE [Concomitant]
     Indication: Product used for unknown indication
     Dosage: USE AS DIRECTED
     Route: 065
     Dates: start: 20230308
  7. Ema [Concomitant]
     Indication: Product used for unknown indication
     Dosage: USE AS DIRECTED
     Route: 065
     Dates: start: 20240515

REACTIONS (2)
  - Urine output decreased [Recovered/Resolved]
  - Headache [Recovered/Resolved]
